FAERS Safety Report 8122525-8 (Version None)
Quarter: 2012Q1

REPORT INFORMATION
  Report Type: 
  Country: None (occurrence: None)
  Receive Date: 20120207
  Receipt Date: 20120207
  Transmission Date: 20120608
  Serious: Yes (Hospitalization)
  Sender: FDA-Public Use
  Company Number: None

PATIENT
  Age: 57 Year
  Sex: Male
  Weight: 97 kg

DRUGS (2)
  1. ACTEMRA [Suspect]
     Dosage: 600MG/800MG EVERY 2WKS ALTERNATIN IV
     Route: 042
  2. KINERET [Suspect]
     Indication: STILL'S DISEASE ADULT ONSET
     Dosage: 1.03MG/KG/DAY AS NEEDED IM
     Route: 030

REACTIONS (4)
  - DIZZINESS [None]
  - MYCOBACTERIUM CHELONAE INFECTION [None]
  - IDIOSYNCRATIC DRUG REACTION [None]
  - LYMPHANGITIS [None]
